FAERS Safety Report 24037622 (Version 2)
Quarter: 2024Q3

REPORT INFORMATION
  Report Type: Spontaneous
  Country: RO (occurrence: None)
  Receive Date: 20240702
  Receipt Date: 20240702
  Transmission Date: 20241017
  Serious: Yes (Other)
  Sender: ASTRAZENECA
  Company Number: 2024A148062

PATIENT
  Age: 34 Year
  Sex: Male

DRUGS (1)
  1. OSIMERTINIB [Suspect]
     Active Substance: OSIMERTINIB
     Route: 048

REACTIONS (17)
  - Malignant neoplasm progression [Unknown]
  - Nasal septum deviation [Unknown]
  - Lymphangiosis carcinomatosa [Unknown]
  - Haemangioma of liver [Unknown]
  - Systolic dysfunction [Unknown]
  - Nasal turbinate hypertrophy [Unknown]
  - Nasal obstruction [Unknown]
  - Liver function test abnormal [Unknown]
  - Renal function test abnormal [Unknown]
  - Anaemia [Unknown]
  - Vomiting [Unknown]
  - Chest pain [Unknown]
  - Pyrexia [Unknown]
  - Blood antidiuretic hormone abnormal [Unknown]
  - Nausea [Unknown]
  - Pain [Unknown]
  - Chronic sinusitis [Unknown]
